FAERS Safety Report 7775364-1 (Version None)
Quarter: 2011Q3

REPORT INFORMATION
  Report Type: 
  Country: None (occurrence: None)
  Receive Date: 20110923
  Receipt Date: 20110915
  Transmission Date: 20111222
  Serious: Yes (Other)
  Sender: FDA-Public Use
  Company Number: PHEH2011US04509

PATIENT
  Sex: Male

DRUGS (10)
  1. EXELON [Suspect]
     Dosage: UNK UKN, UNK
     Route: 048
  2. ACETAMINOPHEN [Concomitant]
     Dosage: UNK UKN, UNK
  3. FISH OIL [Concomitant]
     Dosage: UNK UKN, UNK
  4. VITAMIN-MINERAL COMPOUND TAB [Concomitant]
     Dosage: UNK UKN, UNK
  5. EXELON [Suspect]
     Dosage: 4.6 MG, (2DF)
     Route: 062
  6. CALCIUM CARBONATE [Concomitant]
     Dosage: UNK UKN, UNK
  7. EXELON [Suspect]
     Dosage: 4.6 MG/24H
     Route: 062
  8. MULTI-VITAMIN [Concomitant]
     Dosage: UNK UKN, UNK
  9. ASPIRIN [Concomitant]
     Dosage: UNK UKN, UNK
  10. EXELON [Suspect]
     Dosage: 9.5 MG, QD
     Route: 062

REACTIONS (11)
  - WRONG TECHNIQUE IN DRUG USAGE PROCESS [None]
  - PRURITUS [None]
  - SKIN EXFOLIATION [None]
  - HALLUCINATION [None]
  - OEDEMA PERIPHERAL [None]
  - NIGHTMARE [None]
  - DELUSION [None]
  - ABNORMAL DREAMS [None]
  - HYPERSOMNIA [None]
  - DIZZINESS [None]
  - PRODUCT ADHESION ISSUE [None]
